FAERS Safety Report 18413970 (Version 1)
Quarter: 2020Q4

REPORT INFORMATION
  Report Type: Spontaneous
  Country: US (occurrence: US)
  Receive Date: 20201022
  Receipt Date: 20201022
  Transmission Date: 20210114
  Serious: No
  Sender: FDA-Public Use
  Company Number: US-TEVA-2020-US-1837987

PATIENT

DRUGS (2)
  1. AJOVY [Suspect]
     Active Substance: FREMANEZUMAB-VFRM
  2. AJOVY [Suspect]
     Active Substance: FREMANEZUMAB-VFRM
     Indication: MIGRAINE PROPHYLAXIS
     Route: 065
     Dates: start: 202004, end: 202005

REACTIONS (14)
  - Panic reaction [Unknown]
  - Product complaint [Unknown]
  - Fatigue [Unknown]
  - Liver function test increased [Unknown]
  - Constipation [Unknown]
  - Heart rate increased [Unknown]
  - Vertigo [Unknown]
  - Arthralgia [Unknown]
  - Palpitations [Unknown]
  - Weight increased [Unknown]
  - Emotional distress [Unknown]
  - Abdominal distension [Unknown]
  - Nausea [Unknown]
  - Anxiety [Unknown]

NARRATIVE: CASE EVENT DATE: 2020
